FAERS Safety Report 7661975-0 (Version None)
Quarter: 2011Q3

REPORT INFORMATION
  Report Type: 
  Country: None (occurrence: None)
  Receive Date: 20110805
  Receipt Date: 20101129
  Transmission Date: 20111222
  Serious: No
  Sender: FDA-Public Use
  Company Number: US-ABBOTT-10P-163-0688812-00

PATIENT
  Sex: Male
  Weight: 90.8 kg

DRUGS (7)
  1. CRANBERRY [Concomitant]
     Indication: PRODUCT USED FOR UNKNOWN INDICATION
  2. METAMUCIL-2 [Concomitant]
     Indication: PRODUCT USED FOR UNKNOWN INDICATION
     Dosage: IN AM
  3. NIASPAN [Suspect]
     Indication: BLOOD CHOLESTEROL
  4. TOPROL-XL [Concomitant]
     Indication: CARDIAC DISORDER
  5. ZETIA [Concomitant]
     Indication: PRODUCT USED FOR UNKNOWN INDICATION
  6. DIGOXIN [Concomitant]
     Indication: PRODUCT USED FOR UNKNOWN INDICATION
     Dates: end: 20101124
  7. NIASPAN [Suspect]

REACTIONS (2)
  - DYSPEPSIA [None]
  - MEDICATION RESIDUE [None]
